FAERS Safety Report 25529954 (Version 3)
Quarter: 2025Q3

REPORT INFORMATION
  Report Type: Report from Study
  Country: US (occurrence: US)
  Receive Date: 20250708
  Receipt Date: 20250808
  Transmission Date: 20251020
  Serious: Yes (Other)
  Sender: AGIOS PHARMACEUTICALS
  Company Number: US-AGIOS-2506US04334

PATIENT
  Sex: Male
  Weight: 62.132 kg

DRUGS (1)
  1. MITAPIVAT [Suspect]
     Active Substance: MITAPIVAT
     Indication: Pyruvate kinase deficiency anaemia
     Route: 048
     Dates: start: 20240424

REACTIONS (6)
  - Graft versus host disease [Unknown]
  - Necrosis [Unknown]
  - Rash [Unknown]
  - Arthralgia [Unknown]
  - Steroid therapy [Unknown]
  - Arthropathy [Unknown]
